FAERS Safety Report 8998831 (Version 1)
Quarter: 2013Q1

REPORT INFORMATION
  Report Type: Spontaneous
  Country: US (occurrence: US)
  Receive Date: 20130103
  Receipt Date: 20130103
  Transmission Date: 20140127
  Serious: No
  Sender: FDA-Public Use
  Company Number: US-BIOGENIDEC-2012BI065026

PATIENT
  Age: 47 None
  Sex: Male

DRUGS (5)
  1. TYSABRI [Suspect]
     Indication: MULTIPLE SCLEROSIS
     Route: 042
     Dates: start: 20081008, end: 201210
  2. FLU-SHOT [Concomitant]
     Indication: PROPHYLAXIS
     Dates: start: 20121021, end: 20121021
  3. XANAX [Concomitant]
     Indication: BIPOLAR DISORDER
  4. DEPAKOTE [Concomitant]
     Indication: BIPOLAR DISORDER
  5. SEROQUEL [Concomitant]
     Indication: BIPOLAR DISORDER

REACTIONS (13)
  - Exostosis [Not Recovered/Not Resolved]
  - Diabetes mellitus [Not Recovered/Not Resolved]
  - Blood cholesterol increased [Not Recovered/Not Resolved]
  - Photosensitivity reaction [Not Recovered/Not Resolved]
  - Bone pain [Recovered/Resolved]
  - Eye pain [Recovered/Resolved]
  - Feeling of body temperature change [Recovered/Resolved]
  - Cyst [Not Recovered/Not Resolved]
  - Lethargy [Recovered/Resolved]
  - Headache [Recovered/Resolved]
  - Dizziness [Recovered/Resolved]
  - Nausea [Recovered/Resolved]
  - Hot flush [Recovered/Resolved]
